FAERS Safety Report 20677043 (Version 3)
Quarter: 2022Q2

REPORT INFORMATION
  Report Type: Report from Study
  Country: IL (occurrence: IL)
  Receive Date: 20220406
  Receipt Date: 20220419
  Transmission Date: 20220721
  Serious: Yes (Death, Hospitalization)
  Sender: FDA-Public Use
  Company Number: IL-BAYER-2022A048382

PATIENT
  Age: 76 Year
  Sex: Female

DRUGS (9)
  1. VENTAVIS [Suspect]
     Active Substance: ILOPROST
     Indication: Pulmonary arterial hypertension
     Dosage: 5 MQG, 6ID
     Route: 055
     Dates: start: 20140406
  2. AEROVENT [IPRATROPIUM BROMIDE] [Concomitant]
     Indication: Obstructive airways disorder
     Dosage: UNK, QID
  3. ALDACTONE [Concomitant]
     Active Substance: SPIRONOLACTONE
     Indication: Cardiac failure congestive
     Dosage: 25 MG, QD
     Route: 048
  4. BISOPROLOL FUMARATE [Concomitant]
     Active Substance: BISOPROLOL FUMARATE
     Dosage: 5 MG, QD
     Route: 048
  5. FUROSEMIDE [Concomitant]
     Active Substance: FUROSEMIDE
     Indication: Cardiac failure congestive
     Dosage: 40 MG, BID
     Route: 048
  6. LIPITOR [Concomitant]
     Active Substance: ATORVASTATIN CALCIUM
     Indication: Dyslipidaemia
     Dosage: 20 MG, QD
     Route: 048
  7. NEXIUM [Concomitant]
     Active Substance: ESOMEPRAZOLE MAGNESIUM
     Indication: Peptic ulcer
     Dosage: 40 MG, QD
     Route: 048
  8. FLUTICASONE PROPIONATE [Concomitant]
     Active Substance: FLUTICASONE PROPIONATE
     Dosage: 2 MG, BID
     Route: 055
  9. PREDNISONE [Concomitant]
     Active Substance: PREDNISONE
     Dosage: 30 MG, QD
     Route: 048

REACTIONS (12)
  - Cardiac failure [Fatal]
  - Respiratory failure [Fatal]
  - Dyspnoea [Recovered/Resolved]
  - Urinary retention [Recovered/Resolved]
  - Cardiac failure congestive [Recovered/Resolved]
  - Escherichia urinary tract infection [Unknown]
  - Pyrexia [Unknown]
  - Dyspnoea [Unknown]
  - Chest pain [Unknown]
  - Renal impairment [Unknown]
  - Dyspnoea [Unknown]
  - Chest pain [Unknown]

NARRATIVE: CASE EVENT DATE: 20211101
